FAERS Safety Report 23602430 (Version 1)
Quarter: 2024Q1

REPORT INFORMATION
  Report Type: Spontaneous
  Country: KR (occurrence: KR)
  Receive Date: 20240306
  Receipt Date: 20240306
  Transmission Date: 20240410
  Serious: Yes (Death, Hospitalization, Other)
  Sender: FDA-Public Use
  Company Number: KR-SA-SAC20240301000355

PATIENT

DRUGS (1)
  1. LARONIDASE [Suspect]
     Active Substance: LARONIDASE
     Indication: Mucopolysaccharidosis I
     Dosage: UNK, QW
     Route: 041
     Dates: start: 20180426, end: 202301

REACTIONS (4)
  - Acute respiratory distress syndrome [Fatal]
  - Dyspnoea [Fatal]
  - Heart valve operation [Unknown]
  - Malaise [Unknown]
